FAERS Safety Report 15772152 (Version 1)
Quarter: 2018Q4

REPORT INFORMATION
  Report Type: Spontaneous
  Country: US (occurrence: US)
  Receive Date: 20181228
  Receipt Date: 20181228
  Transmission Date: 20190205
  Serious: No
  Sender: FDA-Public Use
  Company Number: US-SA-2018SA317639

PATIENT
  Age: 76 Year
  Sex: Male
  Weight: 150 kg

DRUGS (1)
  1. DULCOEASE PINK [Suspect]
     Active Substance: DOCUSATE SODIUM
     Dosage: 1 DF, PILL

REACTIONS (1)
  - Burning sensation [Recovered/Resolved]
